FAERS Safety Report 4420994-8 (Version None)
Quarter: 2004Q3

REPORT INFORMATION
  Report Type: 
  Country: None (occurrence: None)
  Receive Date: 20040809
  Receipt Date: 20040630
  Transmission Date: 20050211
  Serious: Yes (Death)
  Sender: FDA-Public Use
  Company Number: US-GLAXOSMITHKLINE-A0516903A

PATIENT
  Age: 29 Year
  Sex: Male
  Weight: 102.3 kg

DRUGS (5)
  1. WELLBUTRIN SR [Suspect]
     Indication: DEPRESSION
     Dosage: 150MG TWICE PER DAY
     Route: 048
  2. ZYPREXA [Concomitant]
  3. LITO [Concomitant]
  4. DEPAKOTE [Concomitant]
  5. EFFEXOR [Concomitant]

REACTIONS (2)
  - DEATH [None]
  - OVERDOSE [None]
